FAERS Safety Report 10513904 (Version 3)
Quarter: 2014Q4

REPORT INFORMATION
  Report Type: Report from Study
  Country: RU (occurrence: RU)
  Receive Date: 20141013
  Receipt Date: 20141120
  Transmission Date: 20150528
  Serious: Yes (Other)
  Sender: FDA-Public Use
  Company Number: RU-SA-2014SA136144

PATIENT
  Age: 75 Year
  Sex: Male

DRUGS (5)
  1. ASPIRIN CARDIO [Suspect]
     Active Substance: ASPIRIN
     Indication: THROMBOSIS PROPHYLAXIS
     Route: 048
     Dates: start: 20140518, end: 20140926
  2. PREDNISOLONE. [Concomitant]
     Active Substance: PREDNISOLONE
     Indication: RHEUMATIC DISORDER
     Dosage: STRENGTH:20 MG
     Route: 048
  3. SOTAHEXAL [Concomitant]
     Active Substance: SOTALOL
     Indication: ARRHYTHMIA PROPHYLAXIS
     Dosage: STRENGTH: 80 MG
     Route: 048
  4. OMEZ [Concomitant]
     Active Substance: OMEPRAZOLE
     Indication: GASTRITIS PROPHYLAXIS
     Dosage: STRENGTH: 20 MG CAPSULE ENTERIC COATED
     Route: 048
  5. PLAVIX [Suspect]
     Active Substance: CLOPIDOGREL BISULFATE
     Indication: THROMBOSIS PROPHYLAXIS
     Route: 048
     Dates: start: 20140518

REACTIONS (2)
  - Abdominal pain upper [Recovering/Resolving]
  - Gastritis erosive [Recovering/Resolving]
